FAERS Safety Report 4553342-3 (Version None)
Quarter: 2005Q1

REPORT INFORMATION
  Report Type: 
  Country: None (occurrence: None)
  Receive Date: 20050112
  Receipt Date: 20041223
  Transmission Date: 20050727
  Serious: Yes (Hospitalization)
  Sender: FDA-Public Use
  Company Number: DE_041214949

PATIENT
  Age: 11 Year
  Sex: Female

DRUGS (2)
  1. HUMATROPE [Suspect]
     Indication: GROWTH HORMONE DEFICIENCY
     Dosage: 0.7 MG/ 1 DAY
     Dates: start: 20041204, end: 20041220
  2. FLUTIDE              (FLUTICASONE PROPIONATE) [Concomitant]

REACTIONS (6)
  - BURNING SENSATION [None]
  - COUGH [None]
  - EYELID OEDEMA [None]
  - INJECTION SITE IRRITATION [None]
  - TETANY [None]
  - URTICARIA [None]
